FAERS Safety Report 19067869 (Version 1)
Quarter: 2021Q1

REPORT INFORMATION
  Report Type: Spontaneous
  Country: US (occurrence: US)
  Receive Date: 20210326
  Receipt Date: 20210326
  Transmission Date: 20210420
  Serious: No
  Sender: FDA-Public Use
  Company Number: None

PATIENT
  Age: 73 Year

DRUGS (1)
  1. AMBRISENTAN [Suspect]
     Active Substance: AMBRISENTAN
     Indication: PULMONARY ARTERIAL HYPERTENSION

REACTIONS (7)
  - Joint swelling [None]
  - Anxiety [None]
  - Dyspnoea [None]
  - Depression [None]
  - Asthenia [None]
  - Fatigue [None]
  - Dizziness [None]

NARRATIVE: CASE EVENT DATE: 20210326
